FAERS Safety Report 22832615 (Version 4)
Quarter: 2023Q4

REPORT INFORMATION
  Report Type: Report from Study
  Country: CA (occurrence: CA)
  Receive Date: 20230817
  Receipt Date: 20231006
  Transmission Date: 20240110
  Serious: Yes (Hospitalization)
  Sender: FDA-Public Use
  Company Number: CA-Merck Healthcare KGaA-2023467180

PATIENT
  Sex: Female

DRUGS (1)
  1. MAVENCLAD [Suspect]
     Active Substance: CLADRIBINE
     Indication: Multiple sclerosis
     Dosage: YEAR ONE THERAPY
     Route: 048
     Dates: start: 20220916

REACTIONS (4)
  - Nephrolithiasis [Not Recovered/Not Resolved]
  - Sepsis [Unknown]
  - Urinary tract infection [Unknown]
  - Kidney infection [Unknown]
